FAERS Safety Report 7032226-5 (Version None)
Quarter: 2010Q4

REPORT INFORMATION
  Report Type: 
  Country: None (occurrence: None)
  Receive Date: 20101007
  Receipt Date: 20101004
  Transmission Date: 20110411
  Serious: Yes (Hospitalization, Other)
  Sender: FDA-Public Use
  Company Number: FR-WYE-G06621210

PATIENT
  Sex: Female
  Weight: 52 kg

DRUGS (3)
  1. EFFEXOR XR [Suspect]
     Indication: DEPRESSION
     Dosage: 75 MG TOTAL DAILY
     Route: 048
     Dates: start: 20040101
  2. PROGESTERONE [Concomitant]
     Indication: HORMONE REPLACEMENT THERAPY
     Dosage: 100 MG
  3. ESTREVA [Concomitant]
     Indication: HORMONE REPLACEMENT THERAPY
     Dosage: UNKNOWN
     Route: 061

REACTIONS (6)
  - BRAIN OEDEMA [None]
  - CEREBRAL HAEMATOMA [None]
  - COMPLEX REGIONAL PAIN SYNDROME [None]
  - FALL [None]
  - HAEMORRHAGIC STROKE [None]
  - LOSS OF CONSCIOUSNESS [None]
